FAERS Safety Report 15309610 (Version 1)
Quarter: 2018Q3

REPORT INFORMATION
  Report Type: Spontaneous
  Country: IT (occurrence: IT)
  Receive Date: 20180823
  Receipt Date: 20180823
  Transmission Date: 20181010
  Serious: Yes (Hospitalization)
  Sender: FDA-Public Use
  Company Number: IT-TEVA-2018-IT-946079

PATIENT
  Age: 73 Year
  Sex: Male

DRUGS (8)
  1. FUROSEMIDE. [Concomitant]
     Active Substance: FUROSEMIDE
     Route: 048
  2. RAMIPRIL. [Concomitant]
     Active Substance: RAMIPRIL
     Route: 048
  3. LERCANIDIPINA [Concomitant]
     Active Substance: LERCANIDIPINE
     Route: 065
  4. LUCEN [Suspect]
     Active Substance: ESOMEPRAZOLE
     Indication: GASTRITIS
     Dosage: 20 MILLIGRAM DAILY;
     Route: 048
     Dates: start: 20081001, end: 20111108
  5. OMEGA POLIENOICI (ESTERI ETILICI DI ACIDI GRASSI POLINSATURI) [Concomitant]
     Route: 048
  6. TICLOPIDINE [Suspect]
     Active Substance: TICLOPIDINE
     Indication: CAROTID ARTERY STENOSIS
     Dosage: 250 MILLIGRAM DAILY;
     Route: 048
     Dates: start: 20080601, end: 20111115
  7. KCL RETARD [Concomitant]
     Active Substance: POTASSIUM CHLORIDE
     Route: 048
  8. SPIRONOLATTONE [Concomitant]
     Active Substance: SPIRONOLACTONE
     Route: 048

REACTIONS (1)
  - Drug reaction with eosinophilia and systemic symptoms [Recovered/Resolved]

NARRATIVE: CASE EVENT DATE: 20110912
